FAERS Safety Report 5711709-1 (Version None)
Quarter: 2008Q2

REPORT INFORMATION
  Report Type: 
  Country: None (occurrence: None)
  Receive Date: 20080421
  Receipt Date: 20080414
  Transmission Date: 20081010
  Serious: Yes (Death, Other)
  Sender: FDA-Public Use
  Company Number: PHHY2008BR05584

PATIENT
  Age: 58 Year
  Sex: Female

DRUGS (1)
  1. MERIGEST [Suspect]
     Indication: MENOPAUSAL SYMPTOMS
     Dosage: 2/0, 7 MG
     Route: 048

REACTIONS (1)
  - NEOPLASM MALIGNANT [None]
